FAERS Safety Report 23606148 (Version 1)
Quarter: 2024Q1

REPORT INFORMATION
  Report Type: Other
  Country: US (occurrence: US)
  Receive Date: 20240307
  Receipt Date: 20240307
  Transmission Date: 20240410
  Serious: Yes (Life-Threatening, Hospitalization)
  Sender: FDA-Public Use
  Company Number: US-Spectra Medical Devices, LLC-2154144

PATIENT
  Age: 62 Year
  Sex: Female
  Weight: 76 kg

DRUGS (10)
  1. LIDOCAINE HYDROCHLORIDE [Suspect]
     Active Substance: LIDOCAINE HYDROCHLORIDE
     Route: 065
  2. ROPIVACAINE. [Suspect]
     Active Substance: ROPIVACAINE HYDROCHLORIDE
     Route: 065
  3. SUGAMMADEX [Concomitant]
     Active Substance: SUGAMMADEX
     Route: 065
  4. DESFLURANE [Suspect]
     Active Substance: DESFLURANE
     Route: 065
  5. LORAZEPAM [Suspect]
     Active Substance: LORAZEPAM
     Route: 065
  6. DEXMEDETOMIDINE [Suspect]
     Active Substance: DEXMEDETOMIDINE
     Route: 065
  7. ROCURONIUM [Suspect]
     Active Substance: ROCURONIUM BROMIDE
     Route: 065
  8. PROPOFOL [Suspect]
     Active Substance: PROPOFOL
     Route: 065
  9. FENTANYL [Suspect]
     Active Substance: FENTANYL\FENTANYL CITRATE
     Route: 065
  10. MIDAZOLAM [Suspect]
     Active Substance: MIDAZOLAM
     Route: 065

REACTIONS (1)
  - Vocal cord disorder [Recovered/Resolved]
